FAERS Safety Report 7376835-2 (Version None)
Quarter: 2011Q1

REPORT INFORMATION
  Report Type: 
  Country: None (occurrence: None)
  Receive Date: 20110325
  Receipt Date: 20110317
  Transmission Date: 20110831
  Serious: Yes (Hospitalization)
  Sender: FDA-Public Use
  Company Number: US-MERCK-1010USA00665

PATIENT
  Age: 55 Year
  Sex: Female
  Weight: 84 kg

DRUGS (8)
  1. CALCIUM (UNSPECIFIED) [Concomitant]
     Route: 048
  2. PREMPRO [Concomitant]
     Indication: HORMONE REPLACEMENT THERAPY
     Route: 048
     Dates: start: 19970305
  3. FOSAMAX [Suspect]
     Indication: STRESS FRACTURE
     Route: 048
     Dates: start: 19970101, end: 20011001
  4. FOSAMAX [Suspect]
     Indication: OSTEOPOROSIS
     Route: 048
     Dates: start: 19970101, end: 20011001
  5. FOSAMAX [Suspect]
     Route: 048
     Dates: start: 20011001, end: 20080101
  6. ADVAIR DISKUS 100/50 [Concomitant]
     Indication: ASTHMA
     Route: 065
  7. FOSAMAX [Suspect]
     Route: 048
     Dates: start: 20011001, end: 20080101
  8. LEVOXYL [Concomitant]
     Indication: HYPOTHYROIDISM
     Route: 065

REACTIONS (16)
  - RIB FRACTURE [None]
  - BLOOD CHOLESTEROL INCREASED [None]
  - ARTHROPOD BITE [None]
  - ROAD TRAFFIC ACCIDENT [None]
  - PAIN IN EXTREMITY [None]
  - FOOT FRACTURE [None]
  - STERNAL FRACTURE [None]
  - RHEUMATOID ARTHRITIS [None]
  - WEIGHT INCREASED [None]
  - LOW TURNOVER OSTEOPATHY [None]
  - DYSPEPSIA [None]
  - OSTEOPENIA [None]
  - ALOPECIA [None]
  - CYSTITIS [None]
  - FEMUR FRACTURE [None]
  - FALL [None]
